FAERS Safety Report 4569106-0 (Version None)
Quarter: 2005Q1

REPORT INFORMATION
  Report Type: 
  Country: None (occurrence: None)
  Receive Date: 20050201
  Receipt Date: 20050121
  Transmission Date: 20050727
  Serious: Yes (Hospitalization)
  Sender: FDA-Public Use
  Company Number: US-2005-000948

PATIENT
  Age: 53 Year
  Sex: Male
  Weight: 79.4 kg

DRUGS (4)
  1. LEUKINE [Suspect]
     Indication: MALIGNANT MELANOMA
     Dosage: 125 UG/M2, 1X/DAY, SUBCUTANEOUS
     Route: 058
     Dates: start: 20010110, end: 20010128
  2. INTRON A [Suspect]
     Indication: MALIGNANT MELANOMA
     Dosage: 5 MU QD, SUBCUTANEOUS
     Route: 058
     Dates: start: 20010110, end: 20010128
  3. TEMOZOLOMDE (TEMOZOLOMIDE) [Suspect]
     Indication: MALIGNANT MELANOMA
     Dosage: ORAL
     Route: 048
     Dates: start: 20010105, end: 20010116
  4. INTERLEUKIN-2 (INTERLEUKIN-2) [Suspect]
     Indication: MALIGNANT MELANOMA
     Dosage: SUBCUTANEOUS
     Route: 058
     Dates: start: 20010110, end: 20010128

REACTIONS (2)
  - AGGRESSION [None]
  - PSYCHOTIC DISORDER [None]
